FAERS Safety Report 14228706 (Version 2)
Quarter: 2017Q4

REPORT INFORMATION
  Report Type: Spontaneous
  Country: PT (occurrence: PT)
  Receive Date: 20171128
  Receipt Date: 20171208
  Transmission Date: 20180321
  Serious: Yes (Other)
  Sender: FDA-Public Use
  Company Number: PT-ROCHE-2027882

PATIENT
  Age: 51 Year
  Sex: Male

DRUGS (3)
  1. ALECENSA [Suspect]
     Active Substance: ALECTINIB HYDROCHLORIDE
     Route: 048
     Dates: start: 20170509, end: 201705
  2. ALECENSA [Suspect]
     Active Substance: ALECTINIB HYDROCHLORIDE
     Route: 048
     Dates: start: 201705
  3. ALECENSA [Suspect]
     Active Substance: ALECTINIB HYDROCHLORIDE
     Indication: NON-SMALL CELL LUNG CANCER
     Route: 048
     Dates: start: 20170428, end: 20170509

REACTIONS (16)
  - Decreased appetite [Unknown]
  - Arthralgia [Unknown]
  - Fatigue [Unknown]
  - Weight decreased [Unknown]
  - Reduced facial expression [Unknown]
  - Bradycardia [Unknown]
  - Asthenia [Unknown]
  - Amnesia [Unknown]
  - Dysgeusia [Unknown]
  - Back pain [Unknown]
  - Slow speech [Unknown]
  - Breath odour [Unknown]
  - Hypokinesia [Recovered/Resolved]
  - Epilepsy [Recovered/Resolved]
  - Transaminases increased [Recovered/Resolved]
  - Paraesthesia [Recovered/Resolved]

NARRATIVE: CASE EVENT DATE: 20170509
